FAERS Safety Report 6450693-2 (Version None)
Quarter: 2009Q4

REPORT INFORMATION
  Report Type: 
  Country: None (occurrence: None)
  Receive Date: 20091123
  Receipt Date: 20091110
  Transmission Date: 20100525
  Serious: Yes (Other)
  Sender: FDA-Public Use
  Company Number: US-ELI_LILLY_AND_COMPANY-US200910005534

PATIENT
  Sex: Female
  Weight: 68.027 kg

DRUGS (5)
  1. FORTEO [Suspect]
     Indication: OSTEOPOROSIS
     Dosage: 20 UG, DAILY (1/D)
     Dates: start: 20090301, end: 20091020
  2. VESICARE [Concomitant]
     Dosage: 5 MG, DAILY (1/D)
  3. CARVEDILOL [Concomitant]
     Dosage: 6.25 MG, 2/D
  4. AMLODIPINE BESILATE [Concomitant]
     Dosage: 5 MG, DAILY (1/D)
  5. HYDROCHLOROTHIAZIDE [Concomitant]
     Dosage: 12.5 MG, DAILY (1/D)

REACTIONS (3)
  - BLINDNESS [None]
  - DIZZINESS [None]
  - LOSS OF CONSCIOUSNESS [None]
